FAERS Safety Report 14289262 (Version 7)
Quarter: 2020Q1

REPORT INFORMATION
  Report Type: Spontaneous
  Country: US (occurrence: US)
  Receive Date: 20171215
  Receipt Date: 20200302
  Transmission Date: 20200409
  Serious: No
  Sender: FDA-Public Use
  Company Number: US-PFIZER INC-2017534645

PATIENT
  Age: 81 Year
  Sex: Female
  Weight: 57 kg

DRUGS (5)
  1. LYRICA [Suspect]
     Active Substance: PREGABALIN
     Dosage: 2 DF, 3X/DAY
     Route: 048
     Dates: start: 20140220
  2. LYRICA [Suspect]
     Active Substance: PREGABALIN
     Dosage: 100 MG, 3X/DAY
     Route: 048
     Dates: start: 20180720
  3. LYRICA [Suspect]
     Active Substance: PREGABALIN
     Indication: FIBROMYALGIA
     Dosage: 100 MG, 3X/DAY
     Route: 048
  4. LYRICA [Suspect]
     Active Substance: PREGABALIN
     Indication: PAIN IN EXTREMITY
     Dosage: 100 MG, 1X/DAY
  5. GABAPENTIN. [Concomitant]
     Active Substance: GABAPENTIN
     Dosage: UNK
     Dates: start: 20160205, end: 20170622

REACTIONS (6)
  - Product dose omission [Unknown]
  - Therapeutic product effect incomplete [Unknown]
  - Impaired driving ability [Unknown]
  - Malaise [Unknown]
  - Neck pain [Unknown]
  - Pain [Unknown]
